FAERS Safety Report 5642006-0 (Version None)
Quarter: 2008Q1

REPORT INFORMATION
  Report Type: 
  Country: None (occurrence: None)
  Receive Date: 20080227
  Receipt Date: 20080215
  Transmission Date: 20080703
  Serious: Yes (Other)
  Sender: FDA-Public Use
  Company Number: US-PFIZER INC-2008015126

PATIENT
  Sex: Female
  Weight: 62.1 kg

DRUGS (7)
  1. CHANTIX [Suspect]
     Indication: SMOKING CESSATION THERAPY
  2. LISINOPRIL [Concomitant]
     Indication: HYPERTENSION
  3. NORVASC [Concomitant]
     Indication: HYPERTENSION
  4. SIMVASTATIN [Concomitant]
     Indication: BLOOD CHOLESTEROL INCREASED
  5. PAROXETINE HCL [Concomitant]
  6. ALPRAZOLAM [Concomitant]
  7. ALL OTHER THERAPEUTIC PRODUCTS [Concomitant]

REACTIONS (5)
  - ANXIETY [None]
  - BLOOD TRIGLYCERIDES INCREASED [None]
  - INTRACRANIAL ANEURYSM [None]
  - NAUSEA [None]
  - NERVOUSNESS [None]
